FAERS Safety Report 10932892 (Version 1)
Quarter: 2015Q1

REPORT INFORMATION
  Report Type: Spontaneous
  Country: US (occurrence: None)
  Receive Date: 20150319
  Receipt Date: 20150319
  Transmission Date: 20150721
  Serious: Yes (Other)
  Sender: FDA-Public Use
  Company Number: None

PATIENT
  Age: 75 Year
  Sex: Female
  Weight: 62.14 kg

DRUGS (16)
  1. CIPROFLOXACIN. [Suspect]
     Active Substance: CIPROFLOXACIN
     Indication: DIVERTICULITIS
     Dosage: 2 PILLS PER DAY 1 IN THE MORN 1 IN THE EVENING BY MOUTH
     Route: 048
     Dates: start: 20150206, end: 20150209
  2. VITAMIN C [Concomitant]
     Active Substance: ASCORBIC ACID
  3. VITAMIN D [Concomitant]
     Active Substance: CHOLECALCIFEROL
  4. COUMADIN [Concomitant]
     Active Substance: WARFARIN SODIUM
  5. VIT B-12 [Concomitant]
  6. BENEFLEX [Concomitant]
  7. VITAMIN E [Concomitant]
     Active Substance: .ALPHA.-TOCOPHEROL
  8. LUETIN [Concomitant]
  9. LISINOPRIL. [Concomitant]
     Active Substance: LISINOPRIL
  10. SIMVASTATIN. [Concomitant]
     Active Substance: SIMVASTATIN
  11. CALCIUM [Concomitant]
     Active Substance: CALCIUM
  12. PROBIOTICS [Concomitant]
     Active Substance: PROBIOTICS NOS
  13. NORVASC [Concomitant]
     Active Substance: AMLODIPINE BESYLATE
  14. VITAMINS [Concomitant]
     Active Substance: VITAMINS
  15. CHROMIUM [Concomitant]
     Active Substance: CHROMIC CHLORIDE\CHROMIUM
  16. PICOLINATE [Concomitant]

REACTIONS (4)
  - Arthralgia [None]
  - Hypersensitivity [None]
  - Rheumatoid arthritis [None]
  - Pain in extremity [None]

NARRATIVE: CASE EVENT DATE: 20150209
